FAERS Safety Report 5153439-3 (Version None)
Quarter: 2006Q4

REPORT INFORMATION
  Report Type: 
  Country: None (occurrence: None)
  Receive Date: 20061117
  Receipt Date: 20061113
  Transmission Date: 20070319
  Serious: Yes (Hospitalization)
  Sender: FDA-Public Use
  Company Number: BR-ABBOTT-06P-020-0350262-00

PATIENT
  Age: 52 Year
  Sex: Male

DRUGS (8)
  1. KALETRA [Suspect]
     Indication: ACQUIRED IMMUNODEFICIENCY SYNDROME
     Route: 048
     Dates: start: 20060801, end: 20061020
  2. KALETRA [Suspect]
     Dosage: 799.8 MG/199.8 MG
     Route: 048
     Dates: start: 20061107
  3. LAMIVUDINE [Suspect]
     Indication: ACQUIRED IMMUNODEFICIENCY SYNDROME
     Route: 048
     Dates: end: 20061020
  4. LAMIVUDINE [Suspect]
     Route: 048
     Dates: start: 20061107
  5. STAVUDINE [Suspect]
     Indication: ACQUIRED IMMUNODEFICIENCY SYNDROME
     Route: 048
     Dates: end: 20061020
  6. STAVUDINE [Suspect]
     Route: 048
     Dates: start: 20061107
  7. ALLOPURINOL [Concomitant]
     Indication: MENTAL DISORDER
     Route: 048
     Dates: start: 20061113
  8. PROMETHAZINE [Concomitant]
     Indication: MENTAL DISORDER
     Route: 048
     Dates: start: 20061113

REACTIONS (6)
  - ASTHENIA [None]
  - BLOOD GLUCOSE INCREASED [None]
  - DRY MOUTH [None]
  - POLYDIPSIA [None]
  - POLYURIA [None]
  - WEIGHT DECREASED [None]
